FAERS Safety Report 20102022 (Version 1)
Quarter: 2021Q4

REPORT INFORMATION
  Report Type: Spontaneous
  Country: CA (occurrence: CA)
  Receive Date: 20211123
  Receipt Date: 20211123
  Transmission Date: 20220303
  Serious: Yes (Hospitalization, Other)
  Sender: FDA-Public Use
  Company Number: CA-PFIZER INC-202101586361

PATIENT
  Age: 68 Year
  Sex: Female

DRUGS (36)
  1. DOXORUBICIN HYDROCHLORIDE [Suspect]
     Active Substance: DOXORUBICIN HYDROCHLORIDE
     Indication: Mantle cell lymphoma
     Route: 065
  2. EPLERENONE [Suspect]
     Active Substance: EPLERENONE
     Indication: Cardiac failure
     Dosage: 25 MG, 1X/DAY
     Route: 065
  3. SPIRONOLACTONE [Suspect]
     Active Substance: SPIRONOLACTONE
     Indication: Cardiomyopathy
     Dosage: 25 MG, 1X/DAY
     Route: 065
  4. SPIRONOLACTONE [Suspect]
     Active Substance: SPIRONOLACTONE
     Indication: Cardiac failure chronic
     Dosage: 25 MG, 1X/DAY
     Route: 065
  5. NITROGLYCERIN [Suspect]
     Active Substance: NITROGLYCERIN
     Indication: Cardiomyopathy
     Dosage: 0.4 MG, 1X/DAY
     Route: 065
  6. NITROGLYCERIN [Suspect]
     Active Substance: NITROGLYCERIN
     Indication: Cardiac failure
     Dosage: 0.4 MG, 1X/DAY
     Route: 065
  7. BISOPROLOL [Suspect]
     Active Substance: BISOPROLOL
     Indication: Cardiomyopathy
     Dosage: 5 MG, 1X/DAY
     Route: 065
  8. BISOPROLOL [Suspect]
     Active Substance: BISOPROLOL
     Indication: Cardiac failure chronic
     Dosage: 10 MG, 1X/DAY
     Route: 065
  9. BISOPROLOL [Suspect]
     Active Substance: BISOPROLOL
     Dosage: 10 MG, 1X/DAY
     Route: 065
  10. BISOPROLOL [Suspect]
     Active Substance: BISOPROLOL
     Indication: Cardiomyopathy
     Dosage: 5 MG, 1X/DAY
  11. BISOPROLOL [Suspect]
     Active Substance: BISOPROLOL
     Indication: Cardiac failure chronic
  12. CANDESARTAN CILEXETIL [Suspect]
     Active Substance: CANDESARTAN CILEXETIL
     Indication: Cardiomyopathy
     Dosage: 16 MG, 1X/DAY
     Route: 048
  13. CANDESARTAN CILEXETIL [Suspect]
     Active Substance: CANDESARTAN CILEXETIL
     Indication: Cardiac failure chronic
     Dosage: 16 MG, 1X/DAY
     Route: 048
  14. CARVEDILOL [Suspect]
     Active Substance: CARVEDILOL
     Indication: Cardiac failure
     Dosage: 25 MG
     Route: 065
  15. CARVEDILOL [Suspect]
     Active Substance: CARVEDILOL
     Dosage: 12.5 MG, 2X/DAY
     Route: 065
  16. ENALAPRIL MALEATE [Suspect]
     Active Substance: ENALAPRIL MALEATE
     Indication: Cardiac failure
     Dosage: 5 MG
     Route: 065
  17. FUROSEMIDE [Suspect]
     Active Substance: FUROSEMIDE
     Indication: Cardiomyopathy
     Dosage: 20 MG
     Route: 065
  18. FUROSEMIDE [Suspect]
     Active Substance: FUROSEMIDE
     Indication: Cardiac failure chronic
     Dosage: 20 MG
     Route: 065
  19. FUROSEMIDE [Suspect]
     Active Substance: FUROSEMIDE
     Dosage: 40 MG, 1X/DAY
     Route: 065
  20. FUROSEMIDE [Suspect]
     Active Substance: FUROSEMIDE
     Dosage: 40 MG, 1X/DAY
     Route: 065
  21. NITRO-DUR [Suspect]
     Active Substance: NITROGLYCERIN
     Indication: Cardiac failure chronic
     Dosage: 0.4 MG 1 EVERY 1 HOURS
     Route: 065
  22. NITRO-DUR [Suspect]
     Active Substance: NITROGLYCERIN
     Indication: Cardiac failure chronic
     Dosage: 0.4 MG 1 EVERY 1 HOURS
     Route: 065
  23. PERINDOPRIL [Suspect]
     Active Substance: PERINDOPRIL
     Indication: Cardiomyopathy
     Dosage: 4 MG, 1X/DAY
     Route: 065
  24. PERINDOPRIL [Suspect]
     Active Substance: PERINDOPRIL
     Indication: Cardiac failure chronic
     Dosage: 4 MG, 1X/DAY
     Route: 065
  25. EPIRUBICIN [Suspect]
     Active Substance: EPIRUBICIN
     Indication: Hormone receptor positive breast cancer
     Route: 042
  26. CISPLATIN [Concomitant]
     Active Substance: CISPLATIN
     Indication: Mantle cell lymphoma
     Route: 065
  27. CYCLOPHOSPHAMIDE [Concomitant]
     Active Substance: CYCLOPHOSPHAMIDE
     Indication: Mantle cell lymphoma
     Route: 065
  28. CYTARABINE [Concomitant]
     Active Substance: CYTARABINE
     Indication: Mantle cell lymphoma
     Route: 065
  29. DEXAMETHASONE [Concomitant]
     Active Substance: DEXAMETHASONE
     Indication: Mantle cell lymphoma
     Route: 065
  30. FLUOROURACIL [Concomitant]
     Active Substance: FLUOROURACIL
     Indication: Hormone receptor positive breast cancer
     Route: 065
  31. LETROZOLE [Concomitant]
     Active Substance: LETROZOLE
     Indication: Hormone receptor positive breast cancer
     Route: 065
  32. MELPHALAN [Concomitant]
     Active Substance: MELPHALAN
     Indication: Mantle cell lymphoma
     Route: 065
  33. PREDNISONE [Concomitant]
     Active Substance: PREDNISONE
     Indication: Mantle cell lymphoma
     Route: 065
  34. RITUXIMAB [Concomitant]
     Active Substance: RITUXIMAB
     Indication: Mantle cell lymphoma
     Route: 065
  35. TAMOXIFEN [Concomitant]
     Active Substance: TAMOXIFEN
     Indication: Mantle cell lymphoma
     Route: 065
  36. VINCRISTINE [Concomitant]
     Active Substance: VINCRISTINE
     Indication: Mantle cell lymphoma
     Route: 065

REACTIONS (10)
  - Cardiac failure congestive [Unknown]
  - Cardiomyopathy [Unknown]
  - Cough [Unknown]
  - Drug ineffective [Unknown]
  - Dyspnoea [Unknown]
  - Hypotension [Unknown]
  - Hypovolaemia [Unknown]
  - Left ventricular dilatation [Unknown]
  - Oedema peripheral [Unknown]
  - Pulmonary arterial pressure increased [Unknown]
